FAERS Safety Report 10201110 (Version 4)
Quarter: 2016Q3

REPORT INFORMATION
  Report Type: Spontaneous
  Country: US (occurrence: US)
  Receive Date: 20140528
  Receipt Date: 20160926
  Transmission Date: 20161108
  Serious: No
  Sender: FDA-Public Use
  Company Number: US-PFIZER INC-2011015518

PATIENT
  Sex: Female

DRUGS (5)
  1. DILACOR XR [Concomitant]
     Active Substance: DILTIAZEM HYDROCHLORIDE
     Dosage: UNK
  2. RELPAX [Suspect]
     Active Substance: ELETRIPTAN HYDROBROMIDE
     Dosage: 40 MG, AS NEEDED (TAKE 1 TABLET BY MOUTH AS NEEDED. MAY REPEAT IN 2 HOURS)
     Route: 048
  3. HYGROTON [Concomitant]
     Active Substance: CHLORTHALIDONE
     Dosage: UNK
  4. RELPAX [Suspect]
     Active Substance: ELETRIPTAN HYDROBROMIDE
     Indication: MIGRAINE WITHOUT AURA
     Dosage: 40 MG, UNK
  5. PAMELOR [Concomitant]
     Active Substance: NORTRIPTYLINE HYDROCHLORIDE
     Dosage: UNK

REACTIONS (3)
  - Migraine [Unknown]
  - Swelling [Unknown]
  - Headache [Unknown]
